FAERS Safety Report 22635614 (Version 7)
Quarter: 2023Q4

REPORT INFORMATION
  Report Type: Report from Study
  Country: CN (occurrence: CN)
  Receive Date: 20230623
  Receipt Date: 20231024
  Transmission Date: 20240109
  Serious: Yes (Life-Threatening, Hospitalization)
  Sender: FDA-Public Use
  Company Number: CN-BRISTOL-MYERS SQUIBB COMPANY-2023-085183

PATIENT
  Age: 70 Year
  Sex: Male
  Weight: 77 kg

DRUGS (24)
  1. DARATUMUMAB [Suspect]
     Active Substance: DARATUMUMAB
     Indication: Plasma cell myeloma
     Dosage: PRIOR TO THE EVENT ONSET, THE PATIENT RECEIVED HIS LAST DOSE OF DARATUMUMAB ON 09-JUN-2023.
     Route: 058
     Dates: start: 20230321
  2. DEXAMETHASONE [Suspect]
     Active Substance: DEXAMETHASONE
     Indication: Plasma cell myeloma
     Dosage: PRIOR TO THE EVENT ONSET, THE PATIENT RECEIVED HIS LAST DOSE OF DEXAMETHASONE ON 25-MAY-2023
     Route: 048
     Dates: start: 20230321
  3. IBERDOMIDE [Suspect]
     Active Substance: IBERDOMIDE
     Indication: Plasma cell myeloma
     Dosage: PRIOR TO THE EVENT ONSET, THE PATIENT RECEIVED HIS LAST DOSE OF IBERDOMIDE ON 25-MAY-2023
     Route: 048
     Dates: start: 20230321
  4. PHENOXYBENZAMINE HYDROCHLORIDE [Concomitant]
     Active Substance: PHENOXYBENZAMINE HYDROCHLORIDE
     Indication: Benign prostatic hyperplasia
     Dosage: 10 MG
     Route: 048
     Dates: start: 2021
  5. AMLODIPINE\VALSARTAN [Concomitant]
     Active Substance: AMLODIPINE\VALSARTAN
     Indication: Hypertension
     Dosage: 1 TABLET
     Route: 048
     Dates: start: 202302
  6. ASPIRIN [Concomitant]
     Active Substance: ASPIRIN
     Indication: Prophylaxis
     Dosage: 10 MG
     Route: 048
     Dates: start: 20230321
  7. ACYCLOVIR [Concomitant]
     Active Substance: ACYCLOVIR
     Indication: Prophylaxis
     Dosage: 0.2 G
     Route: 048
     Dates: start: 20230321
  8. DEXTROSE [Concomitant]
     Active Substance: DEXTROSE\DEXTROSE MONOHYDRATE
     Indication: Hypertrophic cardiomyopathy
     Dates: start: 20230612, end: 20230620
  9. ACETYLCYSTEINE [Concomitant]
     Active Substance: ACETYLCYSTEINE
     Indication: Pneumonitis
     Dates: start: 20230613, end: 20230621
  10. NIFEDIPINE [Concomitant]
     Active Substance: NIFEDIPINE
     Indication: Hypertension
     Route: 048
     Dates: start: 20230612, end: 20230621
  11. POTASSIUM CHLORIDE [Concomitant]
     Active Substance: POTASSIUM CHLORIDE
     Indication: Hypertrophic cardiomyopathy
     Dates: start: 20200612, end: 20200620
  12. POTASSIUM SODIUM DEHYDROANDROANDROGRAPHOLIDE SUCCINATE [Concomitant]
     Indication: Pneumonitis
     Dates: start: 20230612, end: 20230620
  13. VITAMIN B6 [Concomitant]
     Active Substance: PYRIDOXINE HYDROCHLORIDE
     Indication: Hypertrophic cardiomyopathy
     Dates: start: 20230612, end: 20230620
  14. VITAMIN C [Concomitant]
     Active Substance: ASCORBIC ACID
     Indication: Hypertrophic cardiomyopathy
     Dates: start: 20230612, end: 20230620
  15. CEFOPERAZONE SODIUM\SULBACTAM SODIUM [Concomitant]
     Active Substance: CEFOPERAZONE SODIUM\SULBACTAM SODIUM
     Indication: Pneumonitis
     Dates: start: 20230612, end: 20230614
  16. COMPOUND SODIUM CHLORIDE [CALCIUM CHLORIDE;POTASSIUM CHLORIDE;SODIUM C [Concomitant]
     Indication: Supplementation therapy
     Dates: start: 20230612, end: 20230612
  17. IBUPROFEN [Concomitant]
     Active Substance: IBUPROFEN
     Indication: Pneumonitis
     Route: 048
     Dates: start: 20230612, end: 20230612
  18. POTASSIUM CITRATE [Concomitant]
     Active Substance: POTASSIUM CITRATE
     Indication: Supplementation therapy
     Dates: start: 20230613, end: 20230621
  19. LORATADINE [Concomitant]
     Active Substance: LORATADINE
     Indication: Prophylaxis
     Route: 048
     Dates: start: 20230609, end: 20230609
  20. LORATADINE [Concomitant]
     Active Substance: LORATADINE
     Route: 048
     Dates: start: 20230525, end: 20230525
  21. MONTELUKAST SODIUM [Concomitant]
     Active Substance: MONTELUKAST SODIUM
     Indication: Prophylaxis
     Route: 048
     Dates: start: 20230525, end: 20230525
  22. MONTELUKAST SODIUM [Concomitant]
     Active Substance: MONTELUKAST SODIUM
     Route: 048
     Dates: start: 20230609, end: 20230609
  23. ACETAMINOPHEN [Concomitant]
     Active Substance: ACETAMINOPHEN
     Indication: Prophylaxis
     Route: 048
     Dates: start: 20230609, end: 20230609
  24. ACETAMINOPHEN [Concomitant]
     Active Substance: ACETAMINOPHEN
     Route: 048
     Dates: start: 20230525, end: 20230525

REACTIONS (2)
  - COVID-19 [Recovered/Resolved]
  - Pneumonia [Recovered/Resolved]

NARRATIVE: CASE EVENT DATE: 20230612
